FAERS Safety Report 7211831-7 (Version None)
Quarter: 2011Q1

REPORT INFORMATION
  Report Type: 
  Country: None (occurrence: None)
  Receive Date: 20110105
  Receipt Date: 20101227
  Transmission Date: 20110831
  Serious: Yes (Hospitalization)
  Sender: FDA-Public Use
  Company Number: DE-AMGEN-DEUSP2010004847

PATIENT

DRUGS (7)
  1. ETANERCEPT [Suspect]
     Dosage: 25 MG, 2X/DAY
     Route: 058
     Dates: start: 20100601
  2. ETANERCEPT [Suspect]
     Dosage: 25 MG, 2X/WEEK
     Route: 058
     Dates: start: 20100601
  3. ETANERCEPT [Suspect]
  4. ETANERCEPT [Suspect]
     Indication: RHEUMATOID ARTHRITIS
     Dosage: 25 MG, 2 TIMES/WK
     Route: 058
     Dates: start: 20100601, end: 20101101
  5. METHOTREXATE [Concomitant]
     Indication: POLYARTHRITIS
  6. ETANERCEPT [Suspect]
  7. METHOTREXATE [Concomitant]
     Indication: RHEUMATOID ARTHRITIS

REACTIONS (3)
  - PLEURISY [None]
  - PYREXIA [None]
  - LEUKOPENIA [None]
